FAERS Safety Report 7583848-4 (Version None)
Quarter: 2011Q2

REPORT INFORMATION
  Report Type: 
  Country: None (occurrence: None)
  Receive Date: 20110630
  Receipt Date: 20110620
  Transmission Date: 20111010
  Serious: Yes (Other)
  Sender: FDA-Public Use
  Company Number: US-JNJFOC-20110609462

PATIENT
  Sex: Female

DRUGS (4)
  1. ENTOCORT EC [Concomitant]
     Indication: CROHN'S DISEASE
  2. ROWASA [Concomitant]
  3. REMICADE [Suspect]
     Indication: CROHN'S DISEASE
     Route: 042
     Dates: start: 20110606
  4. LIALDA [Concomitant]
     Indication: CROHN'S DISEASE

REACTIONS (2)
  - SYNCOPE [None]
  - URTICARIA [None]
